FAERS Safety Report 17861385 (Version 2)
Quarter: 2020Q2

REPORT INFORMATION
  Report Type: Spontaneous
  Country: FR (occurrence: FR)
  Receive Date: 20200604
  Receipt Date: 20200624
  Transmission Date: 20200714
  Serious: Yes (Hospitalization, Other)
  Sender: FDA-Public Use
  Company Number: FR-TEVA-2020-FR-1241998

PATIENT
  Age: 47 Year
  Sex: Male

DRUGS (8)
  1. ACETYLSALICYLIC ACID [Concomitant]
     Active Substance: ASPIRIN
     Route: 065
  2. TRAMADOL/PARACETAMOL [Concomitant]
     Active Substance: ACETAMINOPHEN\TRAMADOL
     Route: 065
  3. CHLOROQUINE. [Suspect]
     Active Substance: CHLOROQUINE
     Indication: SUBACUTE CUTANEOUS LUPUS ERYTHEMATOSUS
     Route: 065
     Dates: start: 2012
  4. RANITIDINE. [Concomitant]
     Active Substance: RANITIDINE
     Route: 065
  5. CLOBETASOL [Concomitant]
     Active Substance: CLOBETASOL
     Dosage: 1 APPLICATION/DAY
     Route: 065
  6. FENOFIBRATE. [Suspect]
     Active Substance: FENOFIBRATE
     Indication: DYSLIPIDAEMIA
     Route: 065
  7. CLOPIDOGREL [Concomitant]
     Active Substance: CLOPIDOGREL BISULFATE
     Route: 065
  8. HYDROXYCHLOROQUINE [Suspect]
     Active Substance: HYDROXYCHLOROQUINE
     Indication: SUBACUTE CUTANEOUS LUPUS ERYTHEMATOSUS
     Dosage: 400MG PER DAY 7.4 MG/KG/DAY
     Route: 065
     Dates: start: 2005, end: 2012

REACTIONS (12)
  - Atrioventricular block complete [Recovering/Resolving]
  - Myopathy toxic [Recovering/Resolving]
  - Drug ineffective [Unknown]
  - Dysphagia [Recovering/Resolving]
  - Bundle branch block [Recovering/Resolving]
  - Dysphonia [Recovering/Resolving]
  - Left ventricular hypertrophy [Recovering/Resolving]
  - Muscle injury [Recovering/Resolving]
  - Decreased appetite [Recovering/Resolving]
  - Subacute cutaneous lupus erythematosus [Recovering/Resolving]
  - Weight decreased [Recovering/Resolving]
  - Conduction disorder [Recovering/Resolving]

NARRATIVE: CASE EVENT DATE: 2005
